FAERS Safety Report 5150579-X (Version None)
Quarter: 2006Q4

REPORT INFORMATION
  Report Type: 
  Country: None (occurrence: None)
  Receive Date: 20061114
  Receipt Date: 20061010
  Transmission Date: 20070319
  Serious: Yes (Other)
  Sender: FDA-Public Use
  Company Number: BE-ELI_LILLY_AND_COMPANY-BE200610001807

PATIENT
  Age: 43 Year
  Sex: Female
  Weight: 55 kg

DRUGS (4)
  1. CYMBALTA [Suspect]
     Indication: DEPRESSION
     Dosage: 60 MG, DAILY (1/D)
     Route: 048
     Dates: start: 20060615
  2. PRAZEPAM [Concomitant]
     Indication: INSOMNIA
     Dosage: 10 MG, DAILY (1/D)
     Route: 048
  3. LEVONORGESTREL [Concomitant]
     Indication: CONTRACEPTION
     Dosage: UNK, UNK
     Route: 015
  4. REMERGON [Concomitant]

REACTIONS (1)
  - VAGINAL HAEMORRHAGE [None]
